FAERS Safety Report 6132858-2 (Version None)
Quarter: 2009Q1

REPORT INFORMATION
  Report Type: 
  Country: None (occurrence: None)
  Receive Date: 20090324
  Receipt Date: 20090324
  Transmission Date: 20090719
  Serious: No
  Sender: FDA-Public Use
  Company Number: None

PATIENT
  Age: 45 Year
  Sex: Female
  Weight: 63.5036 kg

DRUGS (1)
  1. FOSAMAX [Suspect]
     Indication: OSTEOPENIA
     Dosage: 70 MG ONCE WEEKLY PO
     Route: 048
     Dates: start: 20040309, end: 20080930

REACTIONS (8)
  - AGEUSIA [None]
  - LIP SWELLING [None]
  - OEDEMA MOUTH [None]
  - PAIN [None]
  - PAIN IN JAW [None]
  - POLYNEUROPATHY [None]
  - SWOLLEN TONGUE [None]
  - UNEVALUABLE EVENT [None]
